FAERS Safety Report 21795053 (Version 1)
Quarter: 2022Q4

REPORT INFORMATION
  Report Type: Spontaneous
  Country: KR (occurrence: KR)
  Receive Date: 20221229
  Receipt Date: 20221229
  Transmission Date: 20230113
  Serious: Yes (Other)
  Sender: FDA-Public Use
  Company Number: KR-MYLANLABS-2022M1147355

PATIENT
  Age: 73 Year
  Sex: Male

DRUGS (2)
  1. NEURONTIN [Suspect]
     Active Substance: GABAPENTIN
     Indication: Acute endocarditis
     Dosage: 1 DOSAGE FORM, QD
     Route: 048
     Dates: start: 20201225, end: 20201225
  2. NEURONTIN [Suspect]
     Active Substance: GABAPENTIN
     Indication: Subacute endocarditis

REACTIONS (3)
  - Cachexia [Recovered/Resolved]
  - Somnolence [Recovered/Resolved]
  - Off label use [Unknown]

NARRATIVE: CASE EVENT DATE: 20201225
